FAERS Safety Report 24158518 (Version 1)
Quarter: 2024Q3

REPORT INFORMATION
  Report Type: Spontaneous
  Country: US (occurrence: US)
  Receive Date: 20240731
  Receipt Date: 20240731
  Transmission Date: 20241016
  Serious: No
  Sender: SANOFI AVENTIS
  Company Number: US-SA-SAC20240725000854

PATIENT
  Sex: Female
  Weight: 68 kg

DRUGS (5)
  1. DUPIXENT [Suspect]
     Active Substance: DUPILUMAB
     Indication: Dermatitis atopic
     Dosage: 300 MG, QOW
     Route: 058
  2. SPIRONOLACTONE [Concomitant]
     Active Substance: SPIRONOLACTONE
  3. FAMOTIDINE [Concomitant]
     Active Substance: FAMOTIDINE
  4. TRETINOIN [Concomitant]
     Active Substance: TRETINOIN
  5. DAPSONE [Concomitant]
     Active Substance: DAPSONE

REACTIONS (7)
  - Heart rate irregular [Unknown]
  - Dry skin [Unknown]
  - Pruritus [Unknown]
  - Skin exfoliation [Unknown]
  - Injection site swelling [Unknown]
  - Injection site pain [Unknown]
  - Dermatitis atopic [Unknown]
